FAERS Safety Report 10794704 (Version 6)
Quarter: 2015Q3

REPORT INFORMATION
  Report Type: Report from Study
  Country: US (occurrence: US)
  Receive Date: 20150213
  Receipt Date: 20150709
  Transmission Date: 20151125
  Serious: Yes (Hospitalization)
  Sender: FDA-Public Use
  Company Number: US-ACTELION-A-US2015-112772

PATIENT
  Age: 63 Year
  Sex: Female

DRUGS (7)
  1. MACITENTAN [Suspect]
     Active Substance: MACITENTAN
     Indication: PULMONARY ARTERIAL HYPERTENSION
     Dosage: 10 MG, QD
     Route: 048
     Dates: start: 20140506
  2. MULTIVITAMIN [Concomitant]
     Active Substance: VITAMINS
     Dosage: 1 TABLET, QD
     Route: 048
  3. NORVASC [Concomitant]
     Active Substance: AMLODIPINE BESYLATE
  4. LASIX [Concomitant]
     Active Substance: FUROSEMIDE
     Dosage: 40 MG, QD
     Route: 048
  5. SPIRONOLACTONE. [Concomitant]
     Active Substance: SPIRONOLACTONE
     Dosage: UNK MG, QD
  6. LACTULOSE. [Concomitant]
     Active Substance: LACTULOSE
     Dosage: 20 G, QID
     Route: 048
  7. OXYCODONE [Concomitant]
     Active Substance: OXYCODONE
     Dosage: 5 MG, EVERY 4 HOURS PRN

REACTIONS (16)
  - Abdominal distension [Recovering/Resolving]
  - Hypotension [Recovering/Resolving]
  - Acute respiratory failure [Recovering/Resolving]
  - Treponema test positive [Unknown]
  - Gastric ulcer [Unknown]
  - Ascites [Recovering/Resolving]
  - Transfusion [Recovering/Resolving]
  - Syncope [Unknown]
  - Pneumonia moraxella [Unknown]
  - Abdominal pain [Recovering/Resolving]
  - Hepatic cirrhosis [Unknown]
  - Oesophageal varices haemorrhage [Unknown]
  - Condition aggravated [Recovering/Resolving]
  - Haemoglobin decreased [Recovering/Resolving]
  - Blood count abnormal [Unknown]
  - Gastrointestinal endoscopic therapy [Unknown]

NARRATIVE: CASE EVENT DATE: 20150116
